FAERS Safety Report 25006857 (Version 2)
Quarter: 2025Q2

REPORT INFORMATION
  Report Type: Spontaneous
  Country: US (occurrence: US)
  Receive Date: 20250225
  Receipt Date: 20250606
  Transmission Date: 20250717
  Serious: No
  Sender: TEVA
  Company Number: US-TEVA-VS-3296978

PATIENT
  Age: 64 Year
  Sex: Female

DRUGS (2)
  1. AUSTEDO XR [Suspect]
     Active Substance: DEUTETRABENAZINE
     Indication: Tardive dyskinesia
     Dosage: 36MG ONCE PER DAY
     Route: 065
     Dates: end: 20250524
  2. AUSTEDO XR [Suspect]
     Active Substance: DEUTETRABENAZINE
     Indication: Tardive dyskinesia
     Route: 065
     Dates: start: 20240922

REACTIONS (4)
  - Dyspnoea [Unknown]
  - Drug ineffective [Unknown]
  - Bruxism [Unknown]
  - Insomnia [Unknown]

NARRATIVE: CASE EVENT DATE: 20250101
